FAERS Safety Report 5384010-6 (Version None)
Quarter: 2007Q3

REPORT INFORMATION
  Report Type: 
  Country: None (occurrence: None)
  Receive Date: 20070711
  Receipt Date: 20070703
  Transmission Date: 20080115
  Serious: Yes (Hospitalization)
  Sender: FDA-Public Use
  Company Number: FR-AVENTIS-200712192FR

PATIENT
  Age: 56 Year
  Sex: Female

DRUGS (1)
  1. RIFADIN [Suspect]
     Route: 048
     Dates: start: 20070702, end: 20070702

REACTIONS (5)
  - ABDOMINAL PAIN [None]
  - GASTROINTESTINAL DISORDER [None]
  - LOSS OF CONSCIOUSNESS [None]
  - SYNCOPE VASOVAGAL [None]
  - VOMITING [None]
